FAERS Safety Report 4983421-8 (Version None)
Quarter: 2006Q2

REPORT INFORMATION
  Report Type: 
  Country: None (occurrence: None)
  Receive Date: 20060419
  Receipt Date: 20060406
  Transmission Date: 20061013
  Serious: Yes (Life-Threatening)
  Sender: FDA-Public Use
  Company Number: RENA-11722

PATIENT
  Age: 34 Year
  Sex: Female
  Weight: 50.5 kg

DRUGS (6)
  1. RENAGEL [Suspect]
     Indication: HYPERPHOSPHATAEMIA
     Dosage: 0.5 G TID PO
     Route: 048
     Dates: start: 20040409, end: 20040416
  2. RENAGEL [Suspect]
     Indication: HYPERPHOSPHATAEMIA
     Dosage: 0.25 G TID PO
     Route: 048
     Dates: start: 20040417, end: 20040423
  3. CALTAN (PRECIPITATED CALCIUM CARBONATE) [Concomitant]
  4. LASIX [Concomitant]
  5. MUCOSTA [Concomitant]
  6. CARDENALIN [Concomitant]

REACTIONS (3)
  - ABDOMINAL DISTENSION [None]
  - CONDITION AGGRAVATED [None]
  - CONSTIPATION [None]
